FAERS Safety Report 5259655-4 (Version None)
Quarter: 2007Q1

REPORT INFORMATION
  Report Type: 
  Country: None (occurrence: None)
  Receive Date: 20070307
  Receipt Date: 20070221
  Transmission Date: 20070707
  Serious: Yes (Hospitalization)
  Sender: FDA-Public Use
  Company Number: 07US000869

PATIENT
  Age: 44 Year
  Sex: Female

DRUGS (3)
  1. LITHIUM CARBONATE [Suspect]
     Indication: BIPOLAR DISORDER
     Dosage: 1500 MG, QD, UNK
  2. CARBAMAZEPINE [Concomitant]
  3. PERPHENAZINE [Concomitant]

REACTIONS (8)
  - BLOOD CREATININE INCREASED [None]
  - BLOOD UREA INCREASED [None]
  - CEREBELLAR SYNDROME [None]
  - CEREBRAL ATROPHY [None]
  - ENCEPHALOPATHY [None]
  - ERYTHEMA MULTIFORME [None]
  - PYREXIA [None]
  - THERAPEUTIC AGENT TOXICITY [None]
